FAERS Safety Report 4667617-0 (Version None)
Quarter: 2005Q2

REPORT INFORMATION
  Report Type: 
  Country: None (occurrence: None)
  Receive Date: 20050502
  Receipt Date: 20050127
  Transmission Date: 20051028
  Serious: Yes (Hospitalization, Other)
  Sender: FDA-Public Use
  Company Number: PHEH2004US12087

PATIENT
  Sex: Male
  Weight: 78 kg

DRUGS (1)
  1. LOTREL [Suspect]
     Indication: HYPERTENSION
     Dosage: QD, ORAL
     Route: 048
     Dates: start: 20040201, end: 20040801

REACTIONS (12)
  - ABDOMINAL PAIN LOWER [None]
  - ABDOMINAL TENDERNESS [None]
  - ANGIONEUROTIC OEDEMA [None]
  - ANOREXIA [None]
  - BLOOD AMYLASE INCREASED [None]
  - FLUSHING [None]
  - LEUKOCYTOSIS [None]
  - LIPASE INCREASED [None]
  - NAUSEA [None]
  - PANCREATITIS ACUTE [None]
  - PYREXIA [None]
  - VOMITING [None]
